FAERS Safety Report 4551990-8 (Version None)
Quarter: 2004Q4

REPORT INFORMATION
  Report Type: 
  Country: None (occurrence: None)
  Receive Date: 20041217
  Receipt Date: 20040813
  Transmission Date: 20050328
  Serious: No
  Sender: FDA-Public Use
  Company Number: 2004-BP-06935BP

PATIENT
  Age: 84 Year
  Sex: Female

DRUGS (8)
  1. SPIRIVA [Suspect]
     Indication: CHRONIC OBSTRUCTIVE AIRWAYS DISEASE
     Dosage: 18 MCG (18 MCG, QD), IH
     Route: 055
     Dates: start: 20040805
  2. ALBUTEROL [Concomitant]
  3. ADVAIR (SERETIDE MITE) [Concomitant]
  4. ALLEGRA [Concomitant]
  5. LIPITOR [Concomitant]
  6. SYNTHROID [Concomitant]
  7. ACETYLSALICYLIC ACID SRT [Concomitant]
  8. MICRODENTIN [Concomitant]

REACTIONS (3)
  - DRY MOUTH [None]
  - FLATULENCE [None]
  - NAUSEA [None]
